FAERS Safety Report 9343902 (Version 2)
Quarter: 2013Q2

REPORT INFORMATION
  Report Type: Spontaneous
  Country: DE (occurrence: None)
  Receive Date: 20130610
  Receipt Date: 20130610
  Transmission Date: 20140414
  Serious: Yes (Hospitalization, Other)
  Sender: FDA-Public Use
  Company Number: E2B_00000906

PATIENT
  Sex: Female
  Weight: 3.42 kg

DRUGS (1)
  1. LEVETIRACETAM (LEVETIRACETAM) [Suspect]
     Indication: EPILEPSY
     Dosage: 1500MG (750MG, 2 IN 1D)
     Route: 064
     Dates: start: 20120504, end: 20130206

REACTIONS (3)
  - Maternal drugs affecting foetus [None]
  - Ventouse extraction [None]
  - Oxygen saturation decreased [None]
